FAERS Safety Report 24407007 (Version 1)
Quarter: 2024Q4

REPORT INFORMATION
  Report Type: Spontaneous
  Country: US (occurrence: US)
  Receive Date: 20241007
  Receipt Date: 20241007
  Transmission Date: 20250115
  Serious: No
  Sender: ABBVIE
  Company Number: US-ABBVIE-5946951

PATIENT
  Sex: Female

DRUGS (2)
  1. HUMIRA [Suspect]
     Active Substance: ADALIMUMAB
     Indication: Erythema nodosum
     Dosage: OFF HUMIRA FOR 7 MONTHS
     Route: 058
  2. HUMIRA [Suspect]
     Active Substance: ADALIMUMAB
     Dosage: OFF HUMIRA FOR 7 MONTHS
     Route: 058

REACTIONS (3)
  - Off label use [Unknown]
  - Pneumonia [Unknown]
  - Limb mass [Unknown]
